FAERS Safety Report 5357294-8 (Version None)
Quarter: 2007Q2

REPORT INFORMATION
  Report Type: 
  Country: None (occurrence: None)
  Receive Date: 20070614
  Receipt Date: 20070605
  Transmission Date: 20071010
  Serious: Yes (Hospitalization)
  Sender: FDA-Public Use
  Company Number: US-JNJFOC-20070107094

PATIENT
  Sex: Female
  Weight: 59.88 kg

DRUGS (5)
  1. ORTHO EVRA [Suspect]
     Indication: CONTRACEPTION
     Route: 062
  2. LEVAQUIN [Concomitant]
  3. IRON [Concomitant]
  4. ASCORBIC ACID [Concomitant]
  5. TYLENOL [Concomitant]

REACTIONS (3)
  - ABORTION SPONTANEOUS [None]
  - DEEP VEIN THROMBOSIS [None]
  - PULMONARY EMBOLISM [None]
